FAERS Safety Report 8515265-4 (Version None)
Quarter: 2012Q3

REPORT INFORMATION
  Report Type: 
  Country: None (occurrence: None)
  Receive Date: 20120705
  Receipt Date: 20120621
  Transmission Date: 20120928
  Serious: Yes (Hospitalization, Disabling, Other)
  Sender: FDA-Public Use
  Company Number: 2011MA000946

PATIENT
  Sex: Female
  Weight: 81.6475 kg

DRUGS (36)
  1. METOCLOPRAMIDE [Suspect]
     Indication: GASTROOESOPHAGEAL REFLUX DISEASE
     Dosage: 10 MG;TID;PO
     Route: 048
     Dates: start: 20040501, end: 20081215
  2. EFFEXOR [Concomitant]
  3. FLOVENT [Concomitant]
  4. IRON SUPPLEMENT [Concomitant]
  5. AMLODIPINE [Concomitant]
  6. CLONAZEPAM [Concomitant]
  7. ESTRATEST [Concomitant]
  8. FORADIL [Concomitant]
  9. KEPPRA [Concomitant]
  10. MIRTAZAPINE [Concomitant]
  11. PPI MEDICATIONS [Concomitant]
  12. SEROQUEL [Concomitant]
  13. TYLENOL [Concomitant]
  14. PRANDIN [Concomitant]
  15. SINGULAIR [Concomitant]
  16. XOPENEX [Concomitant]
  17. AMBIEN [Concomitant]
  18. CITALOPRAM HYDROBROMIDE [Concomitant]
  19. METFORMIN HYDROCHLORIDE [Concomitant]
  20. NITROFURANTOIN [Concomitant]
  21. REQUIP [Concomitant]
  22. VESICARE [Concomitant]
  23. AMITIZA [Concomitant]
  24. LOTREL [Concomitant]
  25. MULTI-VITAMIN [Concomitant]
  26. PROTONIX [Concomitant]
  27. VITAMIN E [Concomitant]
  28. ACIPHEX [Concomitant]
  29. DOCUSATE SODIUM [Concomitant]
  30. PRILOSEC [Concomitant]
  31. PROMETHAZINE [Concomitant]
  32. ABILIFY [Concomitant]
  33. ACTOS [Concomitant]
  34. ASPIRIN [Concomitant]
  35. MACROBID [Concomitant]
  36. PAROXETINE [Concomitant]

REACTIONS (36)
  - NAUSEA [None]
  - MAJOR DEPRESSION [None]
  - MUSCULOSKELETAL PAIN [None]
  - ANXIETY [None]
  - DISORIENTATION [None]
  - WEIGHT DECREASED [None]
  - MASTICATION DISORDER [None]
  - DYSKINESIA [None]
  - DYSPNOEA [None]
  - INITIAL INSOMNIA [None]
  - BLADDER DISORDER [None]
  - LUNG NEOPLASM MALIGNANT [None]
  - PANIC ATTACK [None]
  - POST-TRAUMATIC STRESS DISORDER [None]
  - HALLUCINATION [None]
  - GAIT DISTURBANCE [None]
  - DYSGRAPHIA [None]
  - ACTIVITIES OF DAILY LIVING IMPAIRED [None]
  - DYSPHONIA [None]
  - MOOD ALTERED [None]
  - MOVEMENT DISORDER [None]
  - MUSCLE TWITCHING [None]
  - DYSPHAGIA [None]
  - CHOREA [None]
  - EXTRAPYRAMIDAL DISORDER [None]
  - ECONOMIC PROBLEM [None]
  - SPEECH DISORDER [None]
  - TARDIVE DYSKINESIA [None]
  - EMOTIONAL DISTRESS [None]
  - RESTLESS LEGS SYNDROME [None]
  - SUICIDAL IDEATION [None]
  - MEMORY IMPAIRMENT [None]
  - ASTHENIA [None]
  - LACUNAR INFARCTION [None]
  - CONFUSIONAL STATE [None]
  - TREMOR [None]
